FAERS Safety Report 9522464 (Version 1)
Quarter: 2013Q3

REPORT INFORMATION
  Report Type: Report from Study
  Country: US (occurrence: US)
  Receive Date: 20130913
  Receipt Date: 20130913
  Transmission Date: 20140515
  Serious: Yes (Other)
  Sender: FDA-Public Use
  Company Number: US-US-EMD SERONO, INC.-7236362

PATIENT
  Sex: Female

DRUGS (1)
  1. REBIF [Suspect]
     Indication: PRODUCT USED FOR UNKNOWN INDICATION
     Route: 058
     Dates: start: 20080229

REACTIONS (4)
  - Benign neoplasm of thyroid gland [Recovered/Resolved]
  - Uterine leiomyoma [Unknown]
  - Eczema [Unknown]
  - Liver function test abnormal [Unknown]
